FAERS Safety Report 14948295 (Version 1)
Quarter: 2018Q2

REPORT INFORMATION
  Report Type: Spontaneous
  Country: US (occurrence: US)
  Receive Date: 20180508
  Receipt Date: 20180508
  Transmission Date: 20180711
  Serious: Yes (Other)
  Sender: FDA-Public Use
  Company Number: None

PATIENT
  Age: 76 Year
  Sex: Female
  Weight: 82.55 kg

DRUGS (8)
  1. TUMERIC [Concomitant]
     Active Substance: HERBALS\TURMERIC
  2. LEVOTHYROXINE 88MCG 1 QD [Suspect]
     Active Substance: LEVOTHYROXINE
  3. VITAMIN B12 [Concomitant]
     Active Substance: CYANOCOBALAMIN
  4. BIOTIN [Concomitant]
     Active Substance: BIOTIN
  5. NIACIN. [Concomitant]
     Active Substance: NIACIN
  6. TAMOXIFEN 20MG 1 QD [Suspect]
     Active Substance: TAMOXIFEN
     Indication: DRUG THERAPY
     Dates: end: 20180501
  7. MEGARED KRILL [Concomitant]
  8. VITAMIN C [Suspect]
     Active Substance: ASCORBIC ACID

REACTIONS (2)
  - Therapy cessation [None]
  - Economic problem [None]

NARRATIVE: CASE EVENT DATE: 20180427
